FAERS Safety Report 25949923 (Version 2)
Quarter: 2025Q4

REPORT INFORMATION
  Report Type: Spontaneous
  Country: EU (occurrence: EU)
  Receive Date: 20251022
  Receipt Date: 20251028
  Transmission Date: 20260117
  Serious: Yes (Hospitalization, Other)
  Sender: PFIZER
  Company Number: EU-MLMSERVICE-20251013-PI676049-00270-1

PATIENT
  Age: 24 Year
  Sex: Female

DRUGS (5)
  1. METHYLPREDNISOLONE SODIUM SUCCINATE [Suspect]
     Active Substance: METHYLPREDNISOLONE SODIUM SUCCINATE
     Indication: Autoimmune enteropathy
     Dosage: 1 MG/KG, 1X/DAY( HIGH DOSES WERE ADMINISTERED, GRADUALLY, CORTICOSTEROIDS WERE TAPERED.
     Route: 042
  2. METHYLPREDNISOLONE SODIUM SUCCINATE [Suspect]
     Active Substance: METHYLPREDNISOLONE SODIUM SUCCINATE
     Dosage: UNK (INCREASING THE DOSE AND SLOWER TAPERING)
     Route: 042
  3. AZATHIOPRINE [Concomitant]
     Active Substance: AZATHIOPRINE
     Indication: Autoimmune enteropathy
     Dosage: 1 MG/KG, 1X/DAY (INTRODUCED AT 1 MG/KG)
  4. AZATHIOPRINE [Concomitant]
     Active Substance: AZATHIOPRINE
     Dosage: 2 MG/KG, 1X/DAY (INCREASED TO 2 MG/KG AFTER ANOTHER WEEK)
  5. LEVOTHYROXINE [Concomitant]
     Active Substance: LEVOTHYROXINE
     Indication: Autoimmune thyroiditis
     Dosage: UNK

REACTIONS (4)
  - Osteoporotic fracture [Unknown]
  - Fractured sacrum [Unknown]
  - Off label use [Unknown]
  - Drug effective for unapproved indication [Unknown]
